FAERS Safety Report 10335353 (Version 2)
Quarter: 2014Q3

REPORT INFORMATION
  Report Type: Spontaneous
  Country: US (occurrence: US)
  Receive Date: 20140723
  Receipt Date: 20140723
  Transmission Date: 20150326
  Serious: No
  Sender: FDA-Public Use
  Company Number: US-UNITED THERAPEUTICS-UTC-044838

PATIENT
  Age: 49 Year
  Sex: Female
  Weight: 54.43 kg

DRUGS (2)
  1. TRACLEER [Concomitant]
     Active Substance: BOSENTAN\BOSENTAN MONOHYDRATE
  2. REMODULIN [Suspect]
     Active Substance: TREPROSTINIL
     Dosage: 0.101 UG/KG/MINUTE
     Route: 058
     Dates: start: 20040601

REACTIONS (2)
  - Malaise [Unknown]
  - Presyncope [Unknown]

NARRATIVE: CASE EVENT DATE: 20140406
